FAERS Safety Report 5915362-3 (Version None)
Quarter: 2008Q3

REPORT INFORMATION
  Report Type: 
  Country: None (occurrence: None)
  Receive Date: 20080909
  Receipt Date: 20080108
  Transmission Date: 20090109
  Serious: Yes (Hospitalization, Other)
  Sender: FDA-Public Use
  Company Number: 163-20785-07121075

PATIENT
  Age: 18 Year
  Sex: Male

DRUGS (7)
  1. THALOMID [Suspect]
     Indication: CROHN'S DISEASE
     Dosage: 200 MG, DAILY, ORAL ; 100-150MG, DAILY, ORAL
     Route: 048
     Dates: start: 20070507, end: 20070901
  2. THALOMID [Suspect]
     Indication: CROHN'S DISEASE
     Dosage: 200 MG, DAILY, ORAL ; 100-150MG, DAILY, ORAL
     Route: 048
     Dates: start: 20070928, end: 20071206
  3. DULOXETINE (DULOXETINE) [Concomitant]
  4. HUMIRA [Concomitant]
  5. CLONIDINE [Concomitant]
  6. TRAZODONE HCL [Concomitant]
  7. PANTOPRAZOLE SODIUM [Concomitant]

REACTIONS (2)
  - HYPOAESTHESIA [None]
  - PULMONARY EMBOLISM [None]
